FAERS Safety Report 11329951 (Version 2)
Quarter: 2015Q3

REPORT INFORMATION
  Report Type: Report from Study
  Country: BR (occurrence: BR)
  Receive Date: 20150803
  Receipt Date: 20150820
  Transmission Date: 20151125
  Serious: Yes (Hospitalization)
  Sender: FDA-Public Use
  Company Number: PHHY2015BR092533

PATIENT
  Sex: Female
  Weight: 62 kg

DRUGS (2)
  1. EXJADE [Suspect]
     Active Substance: DEFERASIROX
     Dosage: 3 DF (3 TABLETS OF 500 MG), QD
     Route: 048
  2. EXJADE [Suspect]
     Active Substance: DEFERASIROX
     Indication: SICKLE CELL ANAEMIA
     Dosage: 1250 MG, QD (2 TABLETS OF 500 MG AND 1 TABLET OF 250 MG)
     Route: 048
     Dates: start: 201505

REACTIONS (1)
  - Headache [Recovering/Resolving]
